FAERS Safety Report 4467886-6 (Version None)
Quarter: 2004Q4

REPORT INFORMATION
  Report Type: 
  Country: None (occurrence: None)
  Receive Date: 20041001
  Receipt Date: 20040915
  Transmission Date: 20050328
  Serious: Yes (Other)
  Sender: FDA-Public Use
  Company Number: B0345617A

PATIENT
  Age: 68 Year
  Sex: Female
  Weight: 67.1777 kg

DRUGS (14)
  1. AVANDIA [Suspect]
     Indication: DIABETES MELLITUS NON-INSULIN-DEPENDENT
     Dosage: VARIABLE DOSE
     Dates: start: 20010801
  2. METFORMIN HCL [Concomitant]
  3. INT./LONG-ACTING INSULIN [Concomitant]
  4. HUMAN INSULIN [Concomitant]
  5. THYROXINE SODIUM [Concomitant]
  6. FLUOXETINE HYDROCHLORIDE [Concomitant]
  7. OLANZAPINE [Concomitant]
  8. GEMFIBROZIL [Concomitant]
  9. ASPIRIN [Concomitant]
  10. NIZATIDINE [Concomitant]
  11. IPATROPIUM BROMIDE [Concomitant]
  12. SALBUTAMOL SULPHATE [Concomitant]
  13. CELECOXIB [Concomitant]
  14. PARACETAMOL [Concomitant]

REACTIONS (4)
  - CARDIAC FAILURE CONGESTIVE [None]
  - CARDIOMEGALY [None]
  - HYPOGLYCAEMIA [None]
  - WEIGHT INCREASED [None]
